FAERS Safety Report 6083180-4 (Version None)
Quarter: 2009Q1

REPORT INFORMATION
  Report Type: 
  Country: None (occurrence: None)
  Receive Date: 20090213
  Receipt Date: 20090213
  Transmission Date: 20090719
  Serious: Yes (Hospitalization)
  Sender: FDA-Public Use
  Company Number: None

PATIENT
  Age: 75 Year

DRUGS (1)
  1. LEVAQUIN [Suspect]
     Dosage: 750 MG DAILY PO
     Route: 048

REACTIONS (2)
  - BLOOD GLUCOSE DECREASED [None]
  - CONFUSIONAL STATE [None]
